FAERS Safety Report 4408234-7 (Version None)
Quarter: 2004Q3

REPORT INFORMATION
  Report Type: 
  Country: None (occurrence: None)
  Receive Date: 20040726
  Receipt Date: 20040726
  Transmission Date: 20050211
  Serious: Yes (Life-Threatening, Disabling)
  Sender: FDA-Public Use
  Company Number: None

PATIENT
  Age: 25 Year
  Sex: Female
  Weight: 56.6996 kg

DRUGS (2)
  1. ZOLOFT [Suspect]
     Indication: ANXIETY
     Dosage: 1.5 PILLS  PER DAY  ORAL
     Route: 048
     Dates: start: 20030115, end: 20040406
  2. ZOLOFT [Suspect]
     Indication: DEPRESSION
     Dosage: 1.5 PILLS  PER DAY  ORAL
     Route: 048
     Dates: start: 20030115, end: 20040406

REACTIONS (10)
  - CRYING [None]
  - DRUG DEPENDENCE [None]
  - DRUG WITHDRAWAL SYNDROME [None]
  - ECONOMIC PROBLEM [None]
  - FEAR [None]
  - LOSS OF EMPLOYMENT [None]
  - PAIN [None]
  - PYREXIA [None]
  - RELATIONSHIP BREAKDOWN [None]
  - SUICIDAL IDEATION [None]
